FAERS Safety Report 20879582 (Version 1)
Quarter: 2022Q2

REPORT INFORMATION
  Report Type: Spontaneous
  Country: CN (occurrence: CN)
  Receive Date: 20220526
  Receipt Date: 20220526
  Transmission Date: 20220720
  Serious: Yes (Hospitalization, Other)
  Sender: FDA-Public Use
  Company Number: CN-PFIZER INC-202200738893

PATIENT
  Age: 94 Year
  Sex: Male
  Weight: 68 kg

DRUGS (4)
  1. TYGACIL [Suspect]
     Active Substance: TIGECYCLINE
     Indication: Anti-infective therapy
     Dosage: 50 MG, 2X/DAY (Q12H)
     Route: 041
     Dates: start: 20220402, end: 20220411
  2. POLYMYXIN B [Suspect]
     Active Substance: POLYMYXIN B
     Indication: Anti-infective therapy
     Dosage: 500000 IU, 2X/DAY (Q12H)
     Route: 041
     Dates: start: 20220407, end: 20220411
  3. SODIUM CHLORIDE [Concomitant]
     Active Substance: SODIUM CHLORIDE
     Indication: Vehicle solution use
     Dosage: 100 ML, 2X/DAY (Q12H; + TIGECYCLINE)
     Route: 041
     Dates: start: 20220402, end: 20220411
  4. SODIUM CHLORIDE [Concomitant]
     Active Substance: SODIUM CHLORIDE
     Dosage: 100 ML, 2X/DAY (Q12H; + POLYMYXIN B SULFATE)
     Route: 041
     Dates: start: 20220407, end: 20220411

REACTIONS (1)
  - Renal injury [Recovering/Resolving]

NARRATIVE: CASE EVENT DATE: 20220412
